FAERS Safety Report 13508247 (Version 7)
Quarter: 2018Q2

REPORT INFORMATION
  Report Type: Report from Study
  Country: JP (occurrence: JP)
  Receive Date: 20170503
  Receipt Date: 20180405
  Transmission Date: 20180711
  Serious: Yes (Death, Life-Threatening, Hospitalization)
  Sender: FDA-Public Use
  Company Number: JP-VIFOR (INTERNATIONAL) INC.-VIT-2017-04684

PATIENT
  Age: 80 Year
  Sex: Male
  Weight: 44.5 kg

DRUGS (8)
  1. AMLODIN [Concomitant]
     Active Substance: AMLODIPINE BESYLATE
     Route: 048
     Dates: end: 20170228
  2. SEIBULE [Concomitant]
     Active Substance: MIGLITOL
     Route: 048
     Dates: end: 20170228
  3. VELPHORO [Suspect]
     Active Substance: FERRIC OXYHYDROXIDE
     Indication: CHRONIC KIDNEY DISEASE
  4. NESP [Concomitant]
     Active Substance: DARBEPOETIN ALFA
     Dates: end: 20170224
  5. TENELIA [Concomitant]
     Active Substance: TENELIGLIPTIN
     Route: 048
     Dates: end: 20170228
  6. ALFACALCIDOL [Concomitant]
     Active Substance: ALFACALCIDOL
     Route: 048
     Dates: end: 20170228
  7. VELPHORO [Suspect]
     Active Substance: FERRIC OXYHYDROXIDE
     Indication: HYPERPHOSPHATAEMIA
     Route: 048
     Dates: start: 20161216, end: 20170228
  8. CARVEDILOL. [Concomitant]
     Active Substance: CARVEDILOL
     Route: 048
     Dates: end: 20170228

REACTIONS (5)
  - Syncope [Unknown]
  - Intestinal ischaemia [Fatal]
  - Septic shock [Unknown]
  - Upper gastrointestinal perforation [Unknown]
  - Fall [Unknown]

NARRATIVE: CASE EVENT DATE: 20170301
